APPROVED DRUG PRODUCT: ARNUITY ELLIPTA
Active Ingredient: FLUTICASONE FUROATE
Strength: 0.1MG/INH
Dosage Form/Route: POWDER;INHALATION
Application: N205625 | Product #001
Applicant: GLAXOSMITHKLINE INTELLECTUAL PROPERTY DEVELOPMENT LTD ENGLAND
Approved: Aug 20, 2014 | RLD: Yes | RS: Yes | Type: RX